FAERS Safety Report 10340073 (Version 1)
Quarter: 2014Q3

REPORT INFORMATION
  Report Type: Spontaneous
  Country: US (occurrence: US)
  Receive Date: 20140724
  Receipt Date: 20140724
  Transmission Date: 20150326
  Serious: No
  Sender: FDA-Public Use
  Company Number: US-009507513-1406USA011535

PATIENT
  Sex: Female
  Weight: 56.69 kg

DRUGS (1)
  1. MIRALAX [Suspect]
     Active Substance: POLYETHYLENE GLYCOL 3350
     Indication: RECTOCELE
     Dosage: UNK, QD
     Route: 048
     Dates: start: 2013

REACTIONS (4)
  - Flatulence [Not Recovered/Not Resolved]
  - Off label use [Unknown]
  - Abdominal distension [Not Recovered/Not Resolved]
  - Incorrect drug administration duration [Unknown]
